FAERS Safety Report 4337564-2 (Version None)
Quarter: 2004Q2

REPORT INFORMATION
  Report Type: 
  Country: None (occurrence: None)
  Receive Date: 20040412
  Receipt Date: 20040412
  Transmission Date: 20050107
  Serious: Yes (Hospitalization)
  Sender: FDA-Public Use
  Company Number: None

PATIENT
  Sex: Male
  Weight: 93.441 kg

DRUGS (10)
  1. PHENYTOIN [Suspect]
     Indication: CONVULSION
     Dosage: 300 MG AT BEDTIME ORAL
     Route: 048
     Dates: start: 20030101, end: 20040406
  2. MIRTAZEPRINE [Concomitant]
  3. TERAZOSIN HCL [Concomitant]
  4. NIFEDIPINE [Concomitant]
  5. METOPROLOL TARTRATE [Concomitant]
  6. HYDROCHLOROTHIAZIDE [Concomitant]
  7. ASPIRIN [Concomitant]
  8. POTASSIUM [Concomitant]
  9. MULTI-VITAMIN [Concomitant]
  10. ACETAMINOPHEN [Concomitant]

REACTIONS (3)
  - ASTHENIA [None]
  - CHEST PAIN [None]
  - DRUG TOXICITY [None]
